FAERS Safety Report 11808929 (Version 1)
Quarter: 2015Q4

REPORT INFORMATION
  Report Type: Spontaneous
  Country: US (occurrence: US)
  Receive Date: 20151207
  Receipt Date: 20151207
  Transmission Date: 20160305
  Serious: No
  Sender: FDA-Public Use
  Company Number: US-ROCHE-1551380

PATIENT
  Sex: Female

DRUGS (3)
  1. ACTEMRA [Suspect]
     Active Substance: TOCILIZUMAB
     Indication: RHEUMATOID ARTHRITIS
     Route: 058
     Dates: start: 20131228
  2. SOMA [Concomitant]
     Active Substance: CARISOPRODOL
  3. XANAX [Concomitant]
     Active Substance: ALPRAZOLAM

REACTIONS (6)
  - Rheumatoid arthritis [Unknown]
  - Tooth abscess [Unknown]
  - Malaise [Unknown]
  - Influenza [Unknown]
  - Swelling [Unknown]
  - Fatigue [Unknown]
